FAERS Safety Report 25387161 (Version 3)
Quarter: 2025Q3

REPORT INFORMATION
  Report Type: Spontaneous
  Country: BR (occurrence: BR)
  Receive Date: 20250602
  Receipt Date: 20250707
  Transmission Date: 20251020
  Serious: Yes (Other)
  Sender: TAKEDA
  Company Number: BR-TAKEDA-2025TUS049542

PATIENT
  Sex: Female

DRUGS (1)
  1. LISDEXAMFETAMINE DIMESYLATE [Suspect]
     Active Substance: LISDEXAMFETAMINE DIMESYLATE
     Indication: Product used for unknown indication

REACTIONS (9)
  - Product packaging issue [Unknown]
  - Product use issue [Unknown]
  - Adulterated product [Unknown]
  - Product label issue [Unknown]
  - Product physical issue [Unknown]
  - Feeling of despair [Unknown]
  - Therapeutic product effect variable [Unknown]
  - Product container seal issue [Unknown]
  - Anxiety [Unknown]

NARRATIVE: CASE EVENT DATE: 20250521
